FAERS Safety Report 25367376 (Version 1)
Quarter: 2025Q2

REPORT INFORMATION
  Report Type: Report from Study
  Country: BE (occurrence: BE)
  Receive Date: 20250528
  Receipt Date: 20250528
  Transmission Date: 20250717
  Serious: Yes (Other)
  Sender: ABBVIE
  Company Number: BE-ABBVIE-6301379

PATIENT
  Age: 71 Year
  Sex: Female

DRUGS (1)
  1. FOSCARBIDOPA\FOSLEVODOPA [Suspect]
     Active Substance: FOSCARBIDOPA\FOSLEVODOPA
     Indication: Parkinson^s disease
     Route: 058
     Dates: start: 20250505

REACTIONS (6)
  - Cholelithiasis [Recovering/Resolving]
  - Fatigue [Recovering/Resolving]
  - Bronchitis [Recovering/Resolving]
  - Hallucination [Recovered/Resolved]
  - Mobility decreased [Recovered/Resolved]
  - Device defective [Unknown]

NARRATIVE: CASE EVENT DATE: 20250501
